FAERS Safety Report 7394427-6 (Version None)
Quarter: 2011Q2

REPORT INFORMATION
  Report Type: 
  Country: None (occurrence: None)
  Receive Date: 20110405
  Receipt Date: 20110323
  Transmission Date: 20111010
  Serious: Yes (Hospitalization, Other)
  Sender: FDA-Public Use
  Company Number: PHHY2008CA25639

PATIENT
  Sex: Female

DRUGS (10)
  1. SANDOSTATIN LAR [Suspect]
     Dosage: 10 MG EVERY 4 WEEKS
     Route: 030
  2. SANDOSTATIN LAR [Suspect]
     Dosage: 10 MG, QMO
     Route: 030
  3. SANDOSTATIN LAR [Suspect]
     Dosage: 10 MG EVERY 4 WEEKS
     Route: 030
     Dates: end: 20110304
  4. NORVASC [Concomitant]
     Dosage: 1.5 TABS, 7.5 MG DAILY
     Dates: start: 20090506
  5. VITAMIN D [Concomitant]
     Dosage: UNK
  6. METOPROLOL [Concomitant]
  7. SANDOSTATIN LAR [Suspect]
     Indication: GASTRIC MUCOSAL HYPERTROPHY
     Dosage: 10 MG EVERY 4 WEEKS
     Route: 030
     Dates: start: 20080729
  8. SANDOSTATIN LAR [Suspect]
     Dosage: 30 MG, QMO
     Route: 030
  9. ACTONEL [Concomitant]
     Indication: OSTEOPOROSIS
     Dosage: 35 MG, QW
  10. NORVASC [Concomitant]
     Dosage: 1.5 DF DAILY

REACTIONS (24)
  - GASTROINTESTINAL DISORDER [None]
  - HEART RATE IRREGULAR [None]
  - LUNG DISORDER [None]
  - BLOOD PRESSURE SYSTOLIC INCREASED [None]
  - INCREASED UPPER AIRWAY SECRETION [None]
  - ASTHENIA [None]
  - DIZZINESS [None]
  - ANAEMIA [None]
  - ENDOSCOPY UPPER GASTROINTESTINAL TRACT [None]
  - VOMITING [None]
  - BONE DISORDER [None]
  - SWELLING [None]
  - OVARIAN CYST [None]
  - COUGH [None]
  - HEART RATE INCREASED [None]
  - CARDIAC DISORDER [None]
  - AORTIC ANEURYSM [None]
  - OVARIAN ENLARGEMENT [None]
  - DIARRHOEA [None]
  - OSTEOPOROSIS [None]
  - MOBILITY DECREASED [None]
  - MENIERE'S DISEASE [None]
  - DYSPEPSIA [None]
  - FLATULENCE [None]
